FAERS Safety Report 23810150 (Version 1)
Quarter: 2024Q2

REPORT INFORMATION
  Report Type: Spontaneous
  Country: US (occurrence: US)
  Receive Date: 20240502
  Receipt Date: 20240502
  Transmission Date: 20240715
  Serious: Yes (Other)
  Sender: FDA-Public Use
  Company Number: US-BRISTOL-MYERS SQUIBB COMPANY-2024-067656

PATIENT
  Age: 75 Year
  Sex: Female

DRUGS (19)
  1. CAMZYOS [Suspect]
     Active Substance: MAVACAMTEN
     Indication: Cardiomyopathy
     Dosage: DOSE : 5 MG, 2.5 MG;     FREQ : 5 MG: DAILY, EVERY OTHER DAY?2.5 MG: DAILY
     Route: 048
  2. CAMZYOS [Suspect]
     Active Substance: MAVACAMTEN
     Dosage: DOSE : 5 MG, 2.5 MG;     FREQ : 5 MG: DAILY, EVERY OTHER DAY?2.5 MG: DAILY
     Route: 048
  3. CAMZYOS [Suspect]
     Active Substance: MAVACAMTEN
     Dosage: DOSE : 5 MG, 2.5 MG;     FREQ : 5 MG: DAILY, EVERY OTHER DAY?2.5 MG: DAILY
     Route: 048
  4. ATENOLOL [Concomitant]
     Active Substance: ATENOLOL
     Indication: Product used for unknown indication
  5. PIMINODINE [Concomitant]
     Active Substance: PIMINODINE
     Indication: Product used for unknown indication
  6. DORZOLAMIDE [Concomitant]
     Active Substance: DORZOLAMIDE
     Indication: Product used for unknown indication
  7. LATANOPROST [Concomitant]
     Active Substance: LATANOPROST
     Indication: Product used for unknown indication
  8. VITAMIN D3 [Concomitant]
     Active Substance: CHOLECALCIFEROL
     Indication: Product used for unknown indication
  9. CENTRUM SILVER [ASCORBIC ACID;CALCIUM;MINERALS NOS;RETINOL;TOCOPHERYL [Concomitant]
     Indication: Product used for unknown indication
  10. SPIRONOLACTONE [Concomitant]
     Active Substance: SPIRONOLACTONE
     Indication: Product used for unknown indication
  11. ATORVASTATIN [Concomitant]
     Active Substance: ATORVASTATIN
     Indication: Product used for unknown indication
  12. PREDNISOLONE [Concomitant]
     Active Substance: PREDNISOLONE
     Indication: Product used for unknown indication
  13. POLYMYXIN B SULFATE AND TRIMETHOPRIM [Concomitant]
     Active Substance: POLYMYXIN B SULFATE\TRIMETHOPRIM SULFATE
     Indication: Product used for unknown indication
  14. TYLENOL [Concomitant]
     Active Substance: ACETAMINOPHEN
     Indication: Product used for unknown indication
  15. ADVIL [Concomitant]
     Active Substance: IBUPROFEN
     Indication: Product used for unknown indication
  16. TUMS [Concomitant]
     Active Substance: CALCIUM CARBONATE
     Indication: Product used for unknown indication
  17. ASPIRIN [Concomitant]
     Active Substance: ASPIRIN
     Indication: Product used for unknown indication
  18. MIRALAX [Concomitant]
     Active Substance: POLYETHYLENE GLYCOL 3350
     Indication: Product used for unknown indication
  19. DOCUSATE [Concomitant]
     Active Substance: DOCUSATE
     Indication: Product used for unknown indication

REACTIONS (5)
  - Dizziness [Unknown]
  - Muscle spasms [Unknown]
  - Blood magnesium decreased [Unknown]
  - Dyspnoea at rest [Unknown]
  - Treatment noncompliance [Unknown]
